FAERS Safety Report 18656989 (Version 1)
Quarter: 2020Q4

REPORT INFORMATION
  Report Type: Spontaneous
  Country: FR (occurrence: FR)
  Receive Date: 20201223
  Receipt Date: 20201223
  Transmission Date: 20210114
  Serious: Yes (Death)
  Sender: FDA-Public Use
  Company Number: FR-TEVA-2020-FR-1860233

PATIENT
  Age: 79 Year
  Sex: Female

DRUGS (1)
  1. METFORMINE [Suspect]
     Active Substance: METFORMIN HYDROCHLORIDE
     Indication: TYPE 2 DIABETES MELLITUS
     Dosage: 2550 MG
     Route: 048
     Dates: end: 20201124

REACTIONS (3)
  - Lactic acidosis [Fatal]
  - Overdose [Fatal]
  - Wrong dose [Fatal]

NARRATIVE: CASE EVENT DATE: 20201123
